FAERS Safety Report 4745311-5 (Version None)
Quarter: 2005Q3

REPORT INFORMATION
  Report Type: 
  Country: None (occurrence: None)
  Receive Date: 20050812
  Receipt Date: 20050802
  Transmission Date: 20060218
  Serious: Yes (Hospitalization, Other)
  Sender: FDA-Public Use
  Company Number: 2005110202

PATIENT
  Age: 27 Year
  Sex: Female
  Weight: 81 kg

DRUGS (3)
  1. DEPO-PROVERA [Suspect]
     Indication: CONTRACEPTION
     Dosage: SEE IMAGE, INTRAMUSCULAR
     Route: 030
     Dates: start: 20040501, end: 20040501
  2. DEPO-PROVERA [Suspect]
     Indication: CONTRACEPTION
     Dosage: SEE IMAGE, INTRAMUSCULAR
     Route: 030
     Dates: start: 20050718, end: 20050718
  3. SERTRALINE HCL [Concomitant]

REACTIONS (2)
  - URTICARIA [None]
  - WHEEZING [None]
